FAERS Safety Report 5788814-7 (Version None)
Quarter: 2008Q2

REPORT INFORMATION
  Report Type: 
  Country: None (occurrence: None)
  Receive Date: 20080624
  Receipt Date: 20080613
  Transmission Date: 20081010
  Serious: Yes (Hospitalization)
  Sender: FDA-Public Use
  Company Number: WAES 0806USA00101

PATIENT
  Age: 77 Year
  Sex: Male

DRUGS (5)
  1. TAB HYZAAR (LOSARTAN POTASSIUM-HCL) [Suspect]
     Indication: HYPERTENSION
     Dosage: 1 DOSE/DAILY PO
     Route: 048
     Dates: start: 20071101
  2. ALLEGRA [Concomitant]
  3. CALBLOCK [Concomitant]
  4. KEISH-KA-JUTSU-BU-TO [Concomitant]
  5. CYANOCOBALAMIN [Concomitant]

REACTIONS (2)
  - ACUTE MYELOID LEUKAEMIA [None]
  - PANCYTOPENIA [None]
